FAERS Safety Report 23602999 (Version 1)
Quarter: 2024Q1

REPORT INFORMATION
  Report Type: Report from Study
  Country: MX (occurrence: MX)
  Receive Date: 20240306
  Receipt Date: 20240306
  Transmission Date: 20240410
  Serious: Yes (Other)
  Sender: FDA-Public Use
  Company Number: MX-002147023-NVSC2022MX132623

PATIENT
  Sex: Female
  Weight: 78 kg

DRUGS (3)
  1. GILENYA [Suspect]
     Active Substance: FINGOLIMOD HYDROCHLORIDE
     Indication: Multiple sclerosis
     Dosage: 0.5 MG, QD (EVERY 15 DAYS, 1 DAY PER WEEK)
     Route: 048
     Dates: start: 2019, end: 202311
  2. GILENYA [Suspect]
     Active Substance: FINGOLIMOD HYDROCHLORIDE
     Dosage: 0.5 MG, QD
     Route: 048
     Dates: start: 20220519
  3. GILENYA [Suspect]
     Active Substance: FINGOLIMOD HYDROCHLORIDE
     Dosage: 0.5 MG, QD, (EVERY THIRD DAY),
     Route: 048

REACTIONS (18)
  - Multiple sclerosis [Not Recovered/Not Resolved]
  - Thyroid disorder [Unknown]
  - Blindness [Unknown]
  - Neurogenic bladder [Not Recovered/Not Resolved]
  - Multiple sclerosis relapse [Unknown]
  - Disease progression [Unknown]
  - Mobility decreased [Unknown]
  - Incontinence [Unknown]
  - Muscle rigidity [Not Recovered/Not Resolved]
  - Musculoskeletal discomfort [Unknown]
  - Condition aggravated [Unknown]
  - Euphoric mood [Unknown]
  - Arthralgia [Not Recovered/Not Resolved]
  - Product use issue [Unknown]
  - Off label use [Unknown]
  - Drug ineffective [Unknown]
  - Gait disturbance [Unknown]
  - Ill-defined disorder [Unknown]

NARRATIVE: CASE EVENT DATE: 20190101
